FAERS Safety Report 9021563 (Version 1)
Quarter: 2013Q1

REPORT INFORMATION
  Report Type: Spontaneous
  Country: US (occurrence: US)
  Receive Date: 20130119
  Receipt Date: 20130119
  Transmission Date: 20140127
  Serious: Yes (Death, Other)
  Sender: FDA-Public Use
  Company Number: US-UCBSA-075327

PATIENT
  Age: 63 Year
  Sex: Female

DRUGS (8)
  1. ACETAMINOPHEN\HYDROCODONE [Suspect]
     Route: 048
  2. VENLAFAXINE [Suspect]
     Route: 048
  3. BUPROPION [Suspect]
     Route: 048
  4. ETHANOL [Suspect]
     Route: 048
  5. CLONAZEPAM [Suspect]
     Route: 048
  6. ESZOPICLONE [Suspect]
     Route: 048
  7. ACETAMINOPHEN [Suspect]
     Route: 048
  8. TOPIRAMATE [Suspect]
     Route: 048

REACTIONS (1)
  - Completed suicide [Fatal]
